FAERS Safety Report 13563484 (Version 1)
Quarter: 2017Q2

REPORT INFORMATION
  Report Type: Spontaneous
  Country: US (occurrence: US)
  Receive Date: 20170519
  Receipt Date: 20170519
  Transmission Date: 20170830
  Serious: No
  Sender: FDA-Public Use
  Company Number: None

PATIENT
  Age: 49 Year
  Sex: Female
  Weight: 95.6 kg

DRUGS (6)
  1. SAVELLA [Suspect]
     Active Substance: MILNACIPRAN HYDROCHLORIDE
     Indication: FIBROMYALGIA
     Dosage: ?          QUANTITY:1 TABLET(S);?
     Route: 048
     Dates: start: 20170501, end: 20170519
  2. REXULTI [Concomitant]
     Active Substance: BREXPIPRAZOLE
  3. FLEXERIL [Concomitant]
     Active Substance: CYCLOBENZAPRINE HYDROCHLORIDE
  4. STOOL SOFTENER (DOCUSATE) [Concomitant]
     Active Substance: DOCUSATE
  5. VALIUM [Concomitant]
     Active Substance: DIAZEPAM
  6. OXYCODONE [Concomitant]
     Active Substance: OXYCODONE

REACTIONS (14)
  - Pain [None]
  - Myalgia [None]
  - Malaise [None]
  - Depression [None]
  - Fatigue [None]
  - Vision blurred [None]
  - Dysuria [None]
  - Asthenia [None]
  - Arthralgia [None]
  - Migraine [None]
  - Depressed mood [None]
  - Fear [None]
  - Weight increased [None]
  - Headache [None]

NARRATIVE: CASE EVENT DATE: 20170513
